FAERS Safety Report 16369483 (Version 3)
Quarter: 2019Q3

REPORT INFORMATION
  Report Type: Report from Study
  Country: None (occurrence: CH)
  Receive Date: 20190530
  Receipt Date: 20190705
  Transmission Date: 20191004
  Serious: Yes (Death)
  Sender: FDA-Public Use
  Company Number: CH-ABBVIE-19S-151-2800985-00

PATIENT
  Sex: Male

DRUGS (4)
  1. DUODOPA [Suspect]
     Active Substance: CARBIDOPA\LEVODOPA
     Indication: PARKINSON^S DISEASE
     Dosage: 1 CASSETTE PER DAY
     Route: 050
     Dates: start: 20150609, end: 20170217
  2. MORPHINE [Concomitant]
     Active Substance: MORPHINE
     Indication: PALLIATIVE CARE
  3. DUODOPA [Suspect]
     Active Substance: CARBIDOPA\LEVODOPA
     Dosage: MORNING DOSE: 8 ML;?CONTINUOUS RATE DAY: 3 ML;?EXTRA DOSE: 2 ML
     Route: 050
     Dates: start: 20180219, end: 20190528
  4. DUODOPA [Suspect]
     Active Substance: CARBIDOPA\LEVODOPA
     Dosage: MORNING DOSE: 8 ML;?CONTINUOUS RATE DAY: 2.8 ML;?EXTRA DOSE: 2 ML
     Route: 050
     Dates: start: 20170217, end: 20180219

REACTIONS (1)
  - Ileus [Fatal]
